FAERS Safety Report 19197345 (Version 1)
Quarter: 2021Q2

REPORT INFORMATION
  Report Type: Spontaneous
  Country: EG (occurrence: EG)
  Receive Date: 20210429
  Receipt Date: 20210429
  Transmission Date: 20210717
  Serious: Yes (Other)
  Sender: FDA-Public Use
  Company Number: NVSC2021EG082605

PATIENT
  Age: 48 Year
  Sex: Female
  Weight: 91 kg

DRUGS (3)
  1. OXALIPLATIN  EBEWE [Suspect]
     Active Substance: OXALIPLATIN
     Indication: RECTOSIGMOID CANCER
     Dosage: 260 MG (XELOX PROTOCOL)
     Route: 042
  2. OXALIPLATIN  EBEWE [Suspect]
     Active Substance: OXALIPLATIN
     Dosage: XELOX PROTOCOL
     Route: 042
  3. CAPECITABINE. [Suspect]
     Active Substance: CAPECITABINE
     Indication: RECTOSIGMOID CANCER
     Dosage: UNK
     Route: 065

REACTIONS (3)
  - Drug interaction [Unknown]
  - Hypersensitivity [Unknown]
  - Respiratory failure [Recovered/Resolved]

NARRATIVE: CASE EVENT DATE: 20210316
